FAERS Safety Report 13472445 (Version 2)
Quarter: 2017Q2

REPORT INFORMATION
  Report Type: Spontaneous
  Country: US (occurrence: US)
  Receive Date: 20170424
  Receipt Date: 20170531
  Transmission Date: 20170830
  Serious: No
  Sender: FDA-Public Use
  Company Number: US-JNJFOC-20170321756

PATIENT
  Sex: Male

DRUGS (1)
  1. TYLENOL REGULAR STRENGTH [Suspect]
     Active Substance: ACETAMINOPHEN
     Indication: PAIN
     Dosage: 2 IN THE MORNING AND 2 IN THE EVENING.
     Route: 065

REACTIONS (5)
  - Foreign body [Unknown]
  - Drug ineffective [Unknown]
  - Product physical issue [Unknown]
  - Product use complaint [Unknown]
  - Inappropriate schedule of drug administration [Unknown]
